FAERS Safety Report 24248856 (Version 3)
Quarter: 2024Q4

REPORT INFORMATION
  Report Type: Spontaneous
  Country: US (occurrence: US)
  Receive Date: 20240826
  Receipt Date: 20241031
  Transmission Date: 20250115
  Serious: No
  Sender: BRISTOL-MYERS SQUIBB COMPANY
  Company Number: US-BRISTOL-MYERS SQUIBB COMPANY-2024-130706

PATIENT
  Age: 85 Year
  Sex: Female
  Weight: 96.62 kg

DRUGS (1)
  1. REVLIMID [Suspect]
     Active Substance: LENALIDOMIDE
     Indication: Myelodysplastic syndrome
     Route: 048

REACTIONS (4)
  - Influenza like illness [Recovered/Resolved]
  - COVID-19 [Unknown]
  - Off label use [Unknown]
  - Nausea [Unknown]
